FAERS Safety Report 8291229-3 (Version None)
Quarter: 2012Q2

REPORT INFORMATION
  Report Type: 
  Country: None (occurrence: None)
  Receive Date: 20120417
  Receipt Date: 20120411
  Transmission Date: 20120825
  Serious: Yes (Hospitalization)
  Sender: FDA-Public Use
  Company Number: US-BAYER-2011-077140

PATIENT
  Age: 31 Year
  Sex: Female
  Weight: 62.132 kg

DRUGS (11)
  1. FAMOTIDINE [Concomitant]
     Indication: GASTROOESOPHAGEAL REFLUX DISEASE
     Dosage: UNK
     Dates: start: 20100101, end: 20100901
  2. YAZ [Suspect]
  3. SPIRONOLACTONE [Concomitant]
     Indication: POLYCYSTIC OVARIES
     Dosage: UNK
     Dates: start: 20070101
  4. GANIRELIX ACETATE INJECTION [Concomitant]
     Dosage: 30 MG, UNK
  5. YAZ [Suspect]
     Indication: PREMENSTRUAL SYNDROME
     Dosage: UNK
     Route: 048
     Dates: start: 20070901, end: 20100616
  6. KLONOPIN [Concomitant]
     Dosage: 1 MG, QD
  7. FLUOXETINE [Concomitant]
     Dosage: 10 MG, UNK
     Route: 048
  8. YAZ [Suspect]
  9. RANITIDINE [Concomitant]
     Dosage: 300 MG, BID
  10. FLUORETTEN [Concomitant]
  11. VICODIN [Concomitant]

REACTIONS (5)
  - CHOLECYSTITIS [None]
  - INJURY [None]
  - PAIN [None]
  - MENTAL DISORDER [None]
  - CHOLELITHIASIS [None]
